FAERS Safety Report 10506875 (Version 1)
Quarter: 2014Q3

REPORT INFORMATION
  Report Type: Spontaneous
  Country: US (occurrence: None)
  Receive Date: 20140915
  Receipt Date: 20140915
  Transmission Date: 20150326
  Serious: Yes (Other)
  Sender: FDA-Public Use
  Company Number: 2013-US-000017

PATIENT
  Age: 29 Year
  Sex: Female
  Weight: 39 kg

DRUGS (2)
  1. BUPROPION [Concomitant]
     Active Substance: BUPROPION
  2. XYREM [Suspect]
     Active Substance: SODIUM OXYBATE
     Indication: NARCOLEPSY
     Route: 048
     Dates: start: 20111005

REACTIONS (3)
  - Lymphadenopathy [None]
  - Depression [None]
  - Weight decreased [None]

NARRATIVE: CASE EVENT DATE: 201304
